FAERS Safety Report 9739888 (Version 1)
Quarter: 2013Q4

REPORT INFORMATION
  Report Type: Spontaneous
  Country: US (occurrence: US)
  Receive Date: 20131209
  Receipt Date: 20131209
  Transmission Date: 20140711
  Serious: No
  Sender: FDA-Public Use
  Company Number: US-ASTELLAS-2013US012063

PATIENT
  Sex: Male
  Weight: 83 kg

DRUGS (6)
  1. XTANDI [Suspect]
     Indication: PROSTATE CANCER
     Dosage: 160 MG, UID/QD
     Route: 048
     Dates: start: 201306, end: 201309
  2. MORPHINE [Concomitant]
     Indication: PAIN
     Dosage: 15 MG, BID
     Route: 065
     Dates: start: 2013
  3. LYRICA [Concomitant]
     Indication: PAIN
     Dosage: 75 MG, TID
     Route: 065
     Dates: start: 2013
  4. VICODIN [Concomitant]
     Indication: PAIN
     Dosage: 1 DF, PRN
     Route: 065
     Dates: start: 2013
  5. AVODART [Concomitant]
     Indication: PROSTATOMEGALY
     Dosage: 0.5 MG, UID/QD
     Route: 065
     Dates: start: 2011
  6. FLOMAX RELIEF MR [Concomitant]
     Indication: PROSTATOMEGALY
     Dosage: 0.4 MG, UID/QD
     Route: 065
     Dates: start: 2011

REACTIONS (2)
  - Drug ineffective [Unknown]
  - Prostatic specific antigen increased [Unknown]
